FAERS Safety Report 4562216-3 (Version None)
Quarter: 2005Q1

REPORT INFORMATION
  Report Type: 
  Country: None (occurrence: None)
  Receive Date: 20050121
  Receipt Date: 20050111
  Transmission Date: 20050727
  Serious: Yes (Hospitalization, Other)
  Sender: FDA-Public Use
  Company Number: 2005011398

PATIENT
  Age: 74 Year
  Sex: Female

DRUGS (2)
  1. ZYRTEC [Suspect]
     Indication: SEASONAL ALLERGY
     Dosage: 10 MG (10 MG, 1 IN 1 D), ORAL
     Route: 048
  2. CLONIDINE [Concomitant]

REACTIONS (2)
  - HIP ARTHROPLASTY [None]
  - URINARY TRACT INFECTION [None]
